FAERS Safety Report 4952736-1 (Version None)
Quarter: 2006Q1

REPORT INFORMATION
  Report Type: 
  Country: None (occurrence: None)
  Receive Date: 20060320
  Receipt Date: 20040623
  Transmission Date: 20060701
  Serious: Yes (Death, Hospitalization)
  Sender: FDA-Public Use
  Company Number: HQWYE270020MAY03

PATIENT
  Age: 55 Year
  Sex: Male
  Weight: 136.7 kg

DRUGS (1)
  1. MYLOTARG [Suspect]
     Indication: ACUTE MYELOID LEUKAEMIA
     Dosage: 22.5 MG 1X PER 1 DAY, INTRAVENOUS
     Route: 042
     Dates: start: 20030328, end: 20030328

REACTIONS (18)
  - ACUTE MYELOID LEUKAEMIA [None]
  - ASPARTATE AMINOTRANSFERASE INCREASED [None]
  - BACTERIAL SEPSIS [None]
  - BLOOD ALKALINE PHOSPHATASE INCREASED [None]
  - BLOOD BILIRUBIN INCREASED [None]
  - BLOOD CULTURE POSITIVE [None]
  - BLOOD LACTATE DEHYDROGENASE INCREASED [None]
  - BONE MARROW FAILURE [None]
  - CHOLELITHIASIS [None]
  - DISEASE PROGRESSION [None]
  - FEBRILE NEUTROPENIA [None]
  - FUNGAL SEPSIS [None]
  - GAMMA-GLUTAMYLTRANSFERASE INCREASED [None]
  - LYMPHOCYTE COUNT ABNORMAL [None]
  - PLATELET COUNT DECREASED [None]
  - SPLENOMEGALY [None]
  - STAPHYLOCOCCAL INFECTION [None]
  - WEIGHT INCREASED [None]
